FAERS Safety Report 5769009-X (Version None)
Quarter: 2008Q2

REPORT INFORMATION
  Report Type: 
  Country: None (occurrence: None)
  Receive Date: 20080612
  Receipt Date: 20080317
  Transmission Date: 20081010
  Serious: No
  Sender: FDA-Public Use
  Company Number: US-ABBOTT-08P-163-0443127-00

PATIENT
  Sex: Female
  Weight: 59.02 kg

DRUGS (2)
  1. HUMIRA [Suspect]
     Indication: RHEUMATOID ARTHRITIS
     Route: 058
     Dates: start: 20080118, end: 20080201
  2. OTHER MEDICATIONS [Concomitant]
     Indication: DRUG USE FOR UNKNOWN INDICATION

REACTIONS (9)
  - ERYTHEMA [None]
  - EYE PRURITUS [None]
  - EYE SWELLING [None]
  - INJECTION SITE REACTION [None]
  - PRURITUS [None]
  - SKIN EXFOLIATION [None]
  - SKIN IRRITATION [None]
  - SWELLING FACE [None]
  - URTICARIA [None]
